FAERS Safety Report 4577867-X (Version None)
Quarter: 2005Q1

REPORT INFORMATION
  Report Type: 
  Country: None (occurrence: None)
  Receive Date: 20050127
  Receipt Date: 20040830
  Transmission Date: 20050727
  Serious: No
  Sender: FDA-Public Use
  Company Number: USA040876818

PATIENT
  Age: 17 Year
  Sex: Female

DRUGS (3)
  1. STRATTERA [Suspect]
     Indication: ATTENTION DEFICIT/HYPERACTIVITY DISORDER
     Dosage: 60 MG/L DAY
     Dates: start: 20040802
  2. CONCERTA [Concomitant]
  3. YASMIN [Concomitant]

REACTIONS (1)
  - HYPOAESTHESIA [None]
